FAERS Safety Report 4489642-5 (Version None)
Quarter: 2004Q4

REPORT INFORMATION
  Report Type: 
  Country: None (occurrence: None)
  Receive Date: 20041027
  Receipt Date: 20041015
  Transmission Date: 20050328
  Serious: Yes (Other)
  Sender: FDA-Public Use
  Company Number: FLUV00304003016

PATIENT
  Age: 67 Year
  Sex: Female
  Weight: 47 kg

DRUGS (6)
  1. FLUVOXAMINE MALEATE [Suspect]
     Indication: DEPRESSION
     Dosage: 50 MILLIGRAM (S) BID ORAL
     Route: 048
     Dates: start: 20040101
  2. TIZANIDINE HCL [Suspect]
     Indication: MUSCULAR WEAKNESS
     Dosage: 1 MILLIGRAM (S) TID ORAL
     Route: 048
     Dates: start: 20040824, end: 20040831
  3. MEILAX (ETHYL LOFLAZEPATE) [Concomitant]
  4. DOGMATYL (SULPIRIDE) [Concomitant]
  5. LENDORM [Concomitant]
  6. GOSHA-JINKI-GAN (GOSHA-JINKI-GAN) [Concomitant]

REACTIONS (6)
  - DIZZINESS POSTURAL [None]
  - DRUG INTERACTION [None]
  - DYSSTASIA [None]
  - FALL [None]
  - MUSCULAR WEAKNESS [None]
  - ORTHOSTATIC HYPOTENSION [None]
